FAERS Safety Report 25445280 (Version 1)
Quarter: 2025Q2

REPORT INFORMATION
  Report Type: Spontaneous
  Country: US (occurrence: None)
  Receive Date: 20250616
  Receipt Date: 20250616
  Transmission Date: 20250716
  Serious: Yes (Death)
  Sender: FDA-CTU
  Company Number: None

PATIENT
  Age: 72 Year
  Sex: Male
  Weight: 77 kg

DRUGS (2)
  1. CEFTRIAXONE [Suspect]
     Active Substance: CEFTRIAXONE
     Indication: Dental disorder prophylaxis
     Route: 040
     Dates: start: 20250616, end: 20250616
  2. GENTAMICIN [Suspect]
     Active Substance: GENTAMICIN

REACTIONS (5)
  - Infusion related reaction [None]
  - Feeling abnormal [None]
  - Syncope [None]
  - Cyanosis [None]
  - Gastrointestinal sounds abnormal [None]

NARRATIVE: CASE EVENT DATE: 20250616
